FAERS Safety Report 9291333 (Version 1)
Quarter: 2012Q4

REPORT INFORMATION
  Report Type: Spontaneous
  Country: GB (occurrence: None)
  Receive Date: 20121018
  Receipt Date: 20121018
  Transmission Date: 20130627
  Serious: Yes (Life-Threatening, Other)
  Sender: FDA-Public Use
  Company Number: 2012033382

PATIENT
  Age: 72 Year
  Sex: Male

DRUGS (2)
  1. PRIVIGEN (IMMUNE GLOBULIN INTRAVENOUS (HUMAN) 10% LIQUID) [Suspect]
     Indication: HYPOGAMMAGLOBULINEMIA
     Dosage: (10G VIAL 4324100038, 5G 4324000019)
  2. TEICOPLANIN (TEICOPLANIN) [Concomitant]

REACTIONS (2)
  - Candidiasis [None]
  - Fungal infection [None]
